FAERS Safety Report 16449855 (Version 1)
Quarter: 2019Q2

REPORT INFORMATION
  Report Type: Spontaneous
  Country: US (occurrence: US)
  Receive Date: 20190619
  Receipt Date: 20190619
  Transmission Date: 20190711
  Serious: No
  Sender: FDA-Public Use
  Company Number: US-ROCHE-2114101

PATIENT
  Sex: Female
  Weight: 77.18 kg

DRUGS (2)
  1. ACTEMRA [Suspect]
     Active Substance: TOCILIZUMAB
     Indication: TEMPORAL ARTERITIS
     Route: 065
     Dates: start: 20180321
  2. METHOTREXATE. [Concomitant]
     Active Substance: METHOTREXATE
     Dosage: 6 TABS 1 DAY PER WEEK
     Route: 065

REACTIONS (1)
  - Toothache [Not Recovered/Not Resolved]
